FAERS Safety Report 4745653-3 (Version None)
Quarter: 2005Q3

REPORT INFORMATION
  Report Type: 
  Country: None (occurrence: None)
  Receive Date: 20050811
  Receipt Date: 20050805
  Transmission Date: 20060218
  Serious: Yes (Other)
  Sender: FDA-Public Use
  Company Number: 2005-02856

PATIENT
  Age: 54 Year
  Sex: Male

DRUGS (5)
  1. SOTALOL (WATSON LABORATORIES)(SOTALOL HYDROCHLORIDE) TABLET [Suspect]
     Indication: PROPHYLAXIS
     Dosage: SEE IMAGE
     Route: 048
     Dates: start: 20030713, end: 20030729
  2. SOTALOL (WATSON LABORATORIES)(SOTALOL HYDROCHLORIDE) TABLET [Suspect]
     Indication: VENTRICULAR TACHYCARDIA
     Dosage: SEE IMAGE
     Route: 048
     Dates: start: 20030713, end: 20030729
  3. SOTALOL (WATSON LABORATORIES)(SOTALOL HYDROCHLORIDE) TABLET [Suspect]
     Indication: PROPHYLAXIS
     Dosage: SEE IMAGE
     Route: 048
     Dates: start: 20030713
  4. SOTALOL (WATSON LABORATORIES)(SOTALOL HYDROCHLORIDE) TABLET [Suspect]
     Indication: VENTRICULAR TACHYCARDIA
     Dosage: SEE IMAGE
     Route: 048
     Dates: start: 20030713
  5. OLANZAPINE [Concomitant]

REACTIONS (1)
  - ARTERIOSPASM CORONARY [None]
